FAERS Safety Report 8178356-6 (Version None)
Quarter: 2012Q1

REPORT INFORMATION
  Report Type: 
  Country: None (occurrence: None)
  Receive Date: 20120301
  Receipt Date: 20120301
  Transmission Date: 20120608
  Serious: Yes (Hospitalization)
  Sender: FDA-Public Use
  Company Number: US-PFIZER INC-2011230159

PATIENT
  Sex: Female
  Weight: 95 kg

DRUGS (13)
  1. NITRGLYCERIN TRANSDERMAL SYSTEM [Concomitant]
     Indication: ANGINA PECTORIS
     Dosage: UNK
     Route: 062
     Dates: start: 20081001
  2. RAMIPRIL [Concomitant]
     Indication: HYPERTENSION
     Dosage: UNK
     Route: 048
     Dates: start: 20091119
  3. CRESTOR [Concomitant]
     Dosage: UNK
     Route: 048
     Dates: start: 20100504
  4. AMITRIPTYLINE [Concomitant]
     Dosage: UNK
     Route: 048
     Dates: start: 20100311
  5. DIGOXIN [Concomitant]
     Dosage: UNK
     Route: 048
     Dates: start: 20100311
  6. EPLERENONE [Suspect]
     Dosage: 50 MG, 1X/DAY; INTERVAL: DAILY
     Route: 048
     Dates: start: 20101119
  7. METOPROLOL SUCCINATE [Concomitant]
     Indication: HYPERTENSION
     Dosage: UNK
     Route: 048
     Dates: start: 20060101
  8. PROPYLTHIOURACIL [Concomitant]
     Dosage: UNK
     Route: 048
     Dates: start: 20110101
  9. METHIMAZOLE [Concomitant]
     Dosage: UNK
     Route: 048
     Dates: start: 20110101
  10. VENTOLIN HFA [Concomitant]
     Dosage: UNK
     Route: 055
     Dates: start: 20101012
  11. EPLERENONE [Suspect]
     Indication: CARDIAC FAILURE CHRONIC
     Dosage: 25 MG, 1X/DAY; INTERVAL: DAILY
     Route: 048
     Dates: start: 20101012, end: 20101118
  12. NITROGLYCERIN [Concomitant]
     Dosage: UNK
     Route: 060
     Dates: start: 20060101
  13. FUROSEMIDE [Concomitant]
     Indication: HYPERTENSION
     Dosage: UNK
     Route: 048
     Dates: start: 20100311

REACTIONS (1)
  - TOXIC NODULAR GOITRE [None]
